FAERS Safety Report 4937388-9 (Version None)
Quarter: 2006Q1

REPORT INFORMATION
  Report Type: 
  Country: None (occurrence: None)
  Receive Date: 20060306
  Receipt Date: 20060222
  Transmission Date: 20060701
  Serious: Yes (Hospitalization, Disabling)
  Sender: FDA-Public Use
  Company Number: 2005153559

PATIENT
  Age: 44 Year
  Sex: Female
  Weight: 52.6173 kg

DRUGS (25)
  1. SUTENT [Suspect]
     Indication: BREAST CANCER METASTATIC
     Dosage: 37.5 MG (37.5 MG 28 DAYS ON/OFF 14 DAYS) ORAL
     Route: 048
     Dates: start: 20051015, end: 20051104
  2. SYNTHROID [Concomitant]
  3. CIPROFLOXACIN [Concomitant]
  4. LOVENOX [Concomitant]
  5. DURAGESIC-100 [Concomitant]
  6. PROCRIT [Concomitant]
  7. ZYVOX [Concomitant]
  8. ZOFRAN [Concomitant]
  9. PROTONIX [Concomitant]
  10. CLOTRIMAZOLE [Concomitant]
  11. LORTAB [Concomitant]
  12. MAGNESIUM (MAGNESIUM) [Concomitant]
  13. MORPHINE SULFATE [Concomitant]
  14. COLACE (DOCUSATE SODIUM) [Concomitant]
  15. AMBIEN [Concomitant]
  16. LORAZEPAM [Concomitant]
  17. ESGIC (BUTALBITAL, CAFFIENE, PARACETAMOL) [Concomitant]
  18. KAY CIEL DURA-TABS [Concomitant]
  19. MEGACE [Concomitant]
  20. LEVAQUIN [Concomitant]
  21. LASIX [Concomitant]
  22. CYTOMEL (LIOTHYRONOINE SODIUM) [Concomitant]
  23. PREVACID [Concomitant]
  24. MAXIPIME [Concomitant]
  25. PANADEINE CO (CODINE PHOSPHATE, PARACETAMOL) [Concomitant]

REACTIONS (18)
  - ABDOMINAL PAIN [None]
  - BLOOD THYROID STIMULATING HORMONE INCREASED [None]
  - CONDITION AGGRAVATED [None]
  - DEHYDRATION [None]
  - ENTEROCOCCAL INFECTION [None]
  - FLUID OVERLOAD [None]
  - GENERALISED OEDEMA [None]
  - HYPOALBUMINAEMIA [None]
  - HYPOTHYROIDISM [None]
  - KLEBSIELLA INFECTION [None]
  - LEUKOCYTOSIS [None]
  - NAUSEA [None]
  - NEUTROPENIA [None]
  - ORAL INTAKE REDUCED [None]
  - PLEURAL EFFUSION [None]
  - RENAL FAILURE [None]
  - URINARY TRACT INFECTION [None]
  - VOMITING [None]
